FAERS Safety Report 8052760-9 (Version None)
Quarter: 2012Q1

REPORT INFORMATION
  Report Type: 
  Country: None (occurrence: None)
  Receive Date: 20120118
  Receipt Date: 20120106
  Transmission Date: 20120608
  Serious: Yes (Hospitalization)
  Sender: FDA-Public Use
  Company Number: PHHY2011NL93650

PATIENT
  Age: 54 Year
  Sex: Female

DRUGS (14)
  1. NYSTATIN [Concomitant]
  2. NEULASTA [Concomitant]
     Indication: PROPHYLAXIS
  3. GRANISETRON [Concomitant]
  4. DEXAMETHASONE TAB [Concomitant]
  5. DOCETAXEL [Suspect]
     Indication: BREAST CANCER
     Dosage: 140 MG
     Dates: start: 20110819
  6. CYCLOPHOSPHAMIDE [Suspect]
     Indication: BREAST CANCER
     Dosage: 950 MG, UNK
     Dates: start: 20110819
  7. CIPROFLAXACIN [Concomitant]
     Dates: start: 20110823, end: 20110902
  8. CAD [Concomitant]
  9. ACETAMINOPHEN [Concomitant]
  10. ZOLEDRONIC [Suspect]
     Indication: BREAST CANCER
     Dosage: 4 MG
  11. ONDANSETRON [Concomitant]
  12. NEXIUM [Concomitant]
     Dates: start: 20110726
  13. DOXORUBICIN HCL [Suspect]
     Dosage: 95 MG, UNK
     Dates: start: 20110819
  14. ANTAGEL [Concomitant]

REACTIONS (5)
  - DIARRHOEA HAEMORRHAGIC [None]
  - HAEMOGLOBIN DECREASED [None]
  - SIGMOIDITIS [None]
  - HAEMORRHOIDS [None]
  - ABDOMINAL PAIN [None]
